FAERS Safety Report 9385777 (Version 1)
Quarter: 2013Q3

REPORT INFORMATION
  Report Type: Spontaneous
  Country: BR (occurrence: BR)
  Receive Date: 20130705
  Receipt Date: 20130705
  Transmission Date: 20140515
  Serious: Yes (Other)
  Sender: FDA-Public Use
  Company Number: BR-B.I. PHARMACEUTICALS,INC./RIDGEFIELD-2013-BR-00710BR

PATIENT
  Age: 40 Year
  Sex: Male

DRUGS (3)
  1. MICARDIS ANLO [Suspect]
     Indication: HYPERTENSION
     Route: 048
     Dates: start: 201302
  2. HIXIZINE [Concomitant]
     Indication: HYPERSENSITIVITY
  3. LIPITOR [Concomitant]
     Indication: BLOOD CHOLESTEROL INCREASED
     Dates: start: 201303

REACTIONS (5)
  - Hypertensive crisis [Not Recovered/Not Resolved]
  - Headache [Not Recovered/Not Resolved]
  - Pruritus [Recovered/Resolved]
  - Erythema [Recovered/Resolved]
  - Cardiomegaly [Unknown]
